APPROVED DRUG PRODUCT: SODIUM CHLORIDE 23.4%
Active Ingredient: SODIUM CHLORIDE
Strength: 234MG/ML
Dosage Form/Route: INJECTABLE;INJECTION
Application: A217796 | Product #001 | TE Code: AP
Applicant: FRESENIUS KABI USA LLC
Approved: Jul 11, 2023 | RLD: No | RS: No | Type: RX